FAERS Safety Report 7300698-4 (Version None)
Quarter: 2011Q1

REPORT INFORMATION
  Report Type: 
  Country: None (occurrence: None)
  Receive Date: 20110103
  Receipt Date: 20100823
  Transmission Date: 20110831
  Serious: Yes (Death)
  Sender: FDA-Public Use
  Company Number: 246167USA

PATIENT
  Age: 69 Year
  Sex: Female

DRUGS (6)
  1. DULOXETINE [Suspect]
  2. PARACETAMOL [Suspect]
  3. QUETIAPINE [Suspect]
  4. BUPROPION HYDROCHLORIDE [Suspect]
  5. OXYCODONE [Suspect]
  6. DIPHENHYDRAMINE [Suspect]

REACTIONS (1)
  - TOXICITY TO VARIOUS AGENTS [None]
